FAERS Safety Report 6943495-1 (Version None)
Quarter: 2010Q3

REPORT INFORMATION
  Report Type: 
  Country: None (occurrence: None)
  Receive Date: 20100826
  Receipt Date: 20100817
  Transmission Date: 20110219
  Serious: Yes (Other)
  Sender: FDA-Public Use
  Company Number: JP-BAXTER-2010BH021113

PATIENT
  Age: 14 Year
  Sex: Male

DRUGS (7)
  1. CYCLOPHOSPHAMIDE [Suspect]
     Indication: PINEAL NEOPLASM
     Route: 065
     Dates: start: 20050725
  2. ETOPOSIDE [Suspect]
     Indication: PINEAL NEOPLASM
     Route: 065
     Dates: start: 20050725
  3. VINCRISTINE SULFATE [Suspect]
     Indication: PINEAL NEOPLASM
     Route: 065
     Dates: start: 20050725
  4. CISPLATIN [Suspect]
     Indication: PINEAL NEOPLASM
     Route: 065
     Dates: start: 20050725
  5. METHOTREXATE [Suspect]
     Indication: PROPHYLAXIS
     Route: 037
     Dates: start: 20050725
  6. CYTARABINE [Suspect]
     Indication: PROPHYLAXIS
     Route: 037
     Dates: start: 20050725
  7. HYDROCORTISONE [Suspect]
     Indication: PROPHYLAXIS
     Route: 037
     Dates: start: 20050725

REACTIONS (5)
  - BONE MARROW FAILURE [None]
  - DIARRHOEA [None]
  - ORAL DISORDER [None]
  - PARKINSONISM [None]
  - VOMITING [None]
